FAERS Safety Report 12863963 (Version 1)
Quarter: 2016Q4

REPORT INFORMATION
  Report Type: Spontaneous
  Country: CN (occurrence: CN)
  Receive Date: 20161019
  Receipt Date: 20161019
  Transmission Date: 20170207
  Serious: Yes (Life-Threatening)
  Sender: FDA-Public Use
  Company Number: CN-BAXTER-2016BAX052378

PATIENT
  Age: 35 Year
  Sex: Female
  Weight: 56 kg

DRUGS (6)
  1. RINGER^S SOLUTION [Suspect]
     Active Substance: RINGER^S SOLUTION
     Indication: CHILLS
     Route: 041
     Dates: start: 20160610
  2. VITAMIN B6 [Suspect]
     Active Substance: PYRIDOXINE HYDROCHLORIDE
     Indication: FLUID REPLACEMENT
     Route: 041
     Dates: start: 20160608, end: 20160610
  3. PHENERGAN [Suspect]
     Active Substance: PROMETHAZINE HYDROCHLORIDE
     Indication: CHILLS
     Route: 030
     Dates: start: 20160610
  4. VITAMIN C [Suspect]
     Active Substance: ASCORBIC ACID
     Indication: FLUID REPLACEMENT
     Route: 041
     Dates: start: 20160608, end: 20160610
  5. 5% GLUCOSE AND 0.9% SODIUM CHLORIDE INJECTION [Suspect]
     Active Substance: DEXTROSE\SODIUM CHLORIDE
     Indication: POSTOPERATIVE CARE
     Route: 041
     Dates: start: 20160608, end: 20160609
  6. 5% GLUCOSE AND 0.9% SODIUM CHLORIDE INJECTION [Suspect]
     Active Substance: DEXTROSE\SODIUM CHLORIDE
     Dosage: APPROXIMATELY 200 ML OUT OF 250 ML
     Route: 041
     Dates: start: 20160610, end: 20160610

REACTIONS (2)
  - Chills [Recovered/Resolved]
  - Pyrexia [Recovered/Resolved]

NARRATIVE: CASE EVENT DATE: 20160610
